FAERS Safety Report 15763400 (Version 1)
Quarter: 2018Q4

REPORT INFORMATION
  Report Type: Spontaneous
  Country: US (occurrence: US)
  Receive Date: 20181227
  Receipt Date: 20181227
  Transmission Date: 20190205
  Serious: No
  Sender: FDA-Public Use
  Company Number: US-ASTRAZENECA-2018SF57264

PATIENT
  Age: 86 Year
  Sex: Female
  Weight: 63.5 kg

DRUGS (11)
  1. LATANOPROST. [Concomitant]
     Active Substance: LATANOPROST
     Dosage: .05PERCENT TWO TIMES IN LEFT EYE
     Route: 047
  2. CALCIUM WITH D [Concomitant]
     Active Substance: CALCIUM\VITAMIN D
  3. SYMBICORT [Suspect]
     Active Substance: BUDESONIDE\FORMOTEROL FUMARATE DIHYDRATE
     Indication: EMPHYSEMA
     Dosage: 160-4.5 TWO PUFFS
     Route: 055
  4. LOSARTAN. [Concomitant]
     Active Substance: LOSARTAN
     Indication: CARDIAC DISORDER
  5. MULTIVITAMIN [Concomitant]
     Active Substance: VITAMINS
  6. SPIRIVA [Concomitant]
     Active Substance: TIOTROPIUM BROMIDE MONOHYDRATE
  7. LOSARTAN. [Concomitant]
     Active Substance: LOSARTAN
     Indication: BLOOD PRESSURE MEASUREMENT
  8. PROBIOTICS [Concomitant]
     Active Substance: PROBIOTICS NOS
  9. VITAMIN B NOS [Concomitant]
     Active Substance: VITAMIN B
  10. TUDORZA PRESSAIR [Suspect]
     Active Substance: ACLIDINIUM BROMIDE
     Indication: EMPHYSEMA
     Dosage: PRESCRIBED 1 PUFF TWICE A DAY BUT NORMALLY ONLY TAKES ONE PUFF A DAY
     Route: 055
  11. CARVEDILOL. [Concomitant]
     Active Substance: CARVEDILOL
     Indication: CARDIAC DISORDER

REACTIONS (6)
  - Cardiac disorder [Not Recovered/Not Resolved]
  - Lung disorder [Not Recovered/Not Resolved]
  - Renal disorder [Not Recovered/Not Resolved]
  - Device malfunction [Not Recovered/Not Resolved]
  - Hypoacusis [Not Recovered/Not Resolved]
  - Intentional product misuse [Not Recovered/Not Resolved]

NARRATIVE: CASE EVENT DATE: 2018
